FAERS Safety Report 5416573-6 (Version None)
Quarter: 2007Q3

REPORT INFORMATION
  Report Type: 
  Country: None (occurrence: None)
  Receive Date: 20070816
  Receipt Date: 20070809
  Transmission Date: 20080115
  Serious: Yes (Other)
  Sender: FDA-Public Use
  Company Number: FR-TYCO HEALTHCARE/MALLINCKRODT-T200700849

PATIENT

DRUGS (1)
  1. HEXABRIX [Suspect]
     Indication: SPINAL MYELOGRAM
     Dosage: UNK, SINGLE
     Route: 037
     Dates: start: 20070720, end: 20070720

REACTIONS (2)
  - CONVULSION [None]
  - OFF LABEL USE [None]
